FAERS Safety Report 8006639 (Version 4)
Quarter: 2023Q4

REPORT INFORMATION
  Report Type: Spontaneous
  Country: CH (occurrence: CH)
  Receive Date: 20110623
  Receipt Date: 20231020
  Transmission Date: 20240109
  Serious: Yes (Hospitalization, Other)
  Sender: FDA-Public Use
  Company Number: CH-PFIZER INC-2011132053

PATIENT
  Age: 36 Year
  Sex: Female

DRUGS (25)
  1. MEROPENEM [Suspect]
     Active Substance: MEROPENEM
     Indication: Pyrexia
     Dosage: 1 G, 3X/DAY
     Route: 041
     Dates: start: 20110407, end: 20110414
  2. CYTARABINE [Suspect]
     Active Substance: CYTARABINE
     Dosage: 1000 MG/M2, 2X/DAY (DAY 1-6)
     Route: 041
     Dates: start: 20110310, end: 20110316
  3. CYTARABINE [Suspect]
     Active Substance: CYTARABINE
     Dosage: 1000 MG/M2, 2X/DAY (DAY 1-6)
     Route: 041
     Dates: start: 20110329, end: 20110403
  4. IDARUBICIN [Suspect]
     Active Substance: IDARUBICIN
     Dosage: 12 MG/M2, 1X/DAY (DAY 1-3)
     Route: 041
     Dates: start: 20110310, end: 20110312
  5. CIPRALEX [Suspect]
     Active Substance: ESCITALOPRAM OXALATE
     Indication: Bipolar disorder
     Dosage: 10 MG, 1X/DAY
     Route: 048
     Dates: start: 20110308, end: 20110421
  6. CIPRALEX [Suspect]
     Active Substance: ESCITALOPRAM OXALATE
     Indication: Depression
  7. AMSIDYL [Suspect]
     Active Substance: AMSACRINE
     Indication: Myelodysplastic syndrome
     Dosage: 120 MG/M2, 1X/DAY (DAY 4-6)
     Route: 041
     Dates: start: 20110401, end: 20110403
  8. FAMVIR [Suspect]
     Active Substance: FAMCICLOVIR
     Indication: Pyrexia
     Dosage: 500 MG, 2X/DAY
     Route: 048
     Dates: start: 20110405, end: 20110412
  9. FAMVIR [Suspect]
     Active Substance: FAMCICLOVIR
     Indication: Pyrexia
  10. CANCIDAS [Suspect]
     Active Substance: CASPOFUNGIN ACETATE
     Indication: Pyrexia
     Dosage: 70 MG, 1X/DAY
     Route: 048
     Dates: start: 20110407, end: 20110412
  11. MOTILIUM [Concomitant]
     Active Substance: DOMPERIDONE
     Indication: Nausea
     Dosage: 10 MG, AS NEEDED
     Route: 060
     Dates: start: 20110412, end: 20110421
  12. MOTILIUM [Concomitant]
     Active Substance: DOMPERIDONE
     Indication: Vomiting
  13. PIPERACILLIN SODIUM\TAZOBACTAM SODIUM [Concomitant]
     Active Substance: PIPERACILLIN SODIUM\TAZOBACTAM SODIUM
     Indication: Pyrexia
     Dosage: 2.25 MG, 3X/DAY
     Dates: start: 20110326, end: 20110406
  14. PIPERACILLIN SODIUM\TAZOBACTAM SODIUM [Concomitant]
     Active Substance: PIPERACILLIN SODIUM\TAZOBACTAM SODIUM
     Dosage: 2.25 MG, ONCE PER 3 DAYS
     Dates: start: 20110415, end: 20110426
  15. PASPERTIN [Concomitant]
     Indication: Nausea
     Dosage: 10 MG, 3X/DAY
     Route: 048
     Dates: start: 20110308, end: 20110411
  16. PASPERTIN [Concomitant]
     Indication: Vomiting
  17. NEXIUM [Concomitant]
     Active Substance: ESOMEPRAZOLE MAGNESIUM
     Indication: Nausea
     Dosage: 40 MG, 1X/DAY
     Route: 048
     Dates: start: 20110308
  18. NEXIUM [Concomitant]
     Active Substance: ESOMEPRAZOLE MAGNESIUM
     Indication: Vomiting
  19. PERFALGAN [Concomitant]
     Active Substance: ACETAMINOPHEN
     Indication: Pain
     Dosage: 500 MG, AS NEEDED
     Route: 040
     Dates: start: 20110308, end: 20110426
  20. ZOLPIDEM TARTRATE [Concomitant]
     Active Substance: ZOLPIDEM TARTRATE
     Indication: Sleep disorder
     Dosage: 10 MG, AS NEEDED
     Route: 048
     Dates: start: 20110308, end: 20110426
  21. BUTYLSCOPOLAMINE BROMIDE [Concomitant]
     Active Substance: BUTYLSCOPOLAMINE BROMIDE
     Dosage: 10 MG, AS NEEDED
     Route: 048
     Dates: start: 20110308, end: 20110426
  22. PRIMOLUT-N [Concomitant]
     Dosage: 5 MG, 4X/DAY
     Route: 048
  23. DEXAMETHASONE [Concomitant]
     Active Substance: DEXAMETHASONE
     Dosage: 8 MG, 3X/DAY
     Route: 048
     Dates: start: 201103, end: 201103
  24. VFEND [Concomitant]
     Active Substance: VORICONAZOLE
     Indication: Pyrexia
     Dosage: 1 G, 2X/DAY
     Route: 048
     Dates: start: 20110413, end: 20110421
  25. FLAGYL [Concomitant]
     Active Substance: METRONIDAZOLE\METRONIDAZOLE HYDROCHLORIDE
     Indication: Pyrexia
     Dosage: 500 MG, 3X/DAY
     Dates: start: 20110410, end: 20110503

REACTIONS (7)
  - Serotonin syndrome [Recovered/Resolved]
  - Cytarabine syndrome [Recovering/Resolving]
  - Rhabdomyolysis [Recovered/Resolved]
  - Myalgia [Recovering/Resolving]
  - Rash [Recovered/Resolved]
  - Hepatocellular injury [Recovered/Resolved]
  - Coagulopathy [Recovered/Resolved]

NARRATIVE: CASE EVENT DATE: 20110301
